FAERS Safety Report 12904170 (Version 1)
Quarter: 2016Q4

REPORT INFORMATION
  Report Type: Report from Study
  Country: BR (occurrence: BR)
  Receive Date: 20161102
  Receipt Date: 20161102
  Transmission Date: 20170207
  Serious: Yes (Other)
  Sender: FDA-Public Use
  Company Number: BR-JNJFOC-20161024707

PATIENT
  Age: 54 Year
  Sex: Female
  Weight: 58 kg

DRUGS (7)
  1. PANTOPRAZOLE [Concomitant]
     Active Substance: PANTOPRAZOLE SODIUM
     Route: 065
  2. ACETAMINOPHEN. [Concomitant]
     Active Substance: ACETAMINOPHEN
     Route: 065
  3. VITAMIN D [Concomitant]
     Active Substance: CHOLECALCIFEROL
     Route: 065
  4. SIMPONI [Suspect]
     Active Substance: GOLIMUMAB
     Indication: RHEUMATOID ARTHRITIS
     Route: 058
     Dates: start: 20140416
  5. ARAVA [Concomitant]
     Active Substance: LEFLUNOMIDE
     Route: 065
  6. DEFLAZACORT [Concomitant]
     Active Substance: DEFLAZACORT
     Route: 065
  7. ROSUVASTATIN. [Concomitant]
     Active Substance: ROSUVASTATIN
     Route: 065

REACTIONS (3)
  - Blood pressure increased [Recovering/Resolving]
  - Influenza [Unknown]
  - Dengue fever [Unknown]

NARRATIVE: CASE EVENT DATE: 2015
